FAERS Safety Report 9586270 (Version 1)
Quarter: 2013Q4

REPORT INFORMATION
  Report Type: Spontaneous
  Country: US (occurrence: None)
  Receive Date: 20131002
  Receipt Date: 20131002
  Transmission Date: 20140711
  Serious: No
  Sender: FDA-Public Use
  Company Number: None

PATIENT
  Age: 70 Year
  Sex: Male
  Weight: 100.7 kg

DRUGS (3)
  1. TORADOL [Suspect]
     Indication: POSTOPERATIVE ANALGESIA
  2. VIT D [Concomitant]
  3. IBUPROFEN [Concomitant]

REACTIONS (5)
  - Haemarthrosis [None]
  - Skin discolouration [None]
  - Local swelling [None]
  - Muscle haemorrhage [None]
  - Swelling [None]
